FAERS Safety Report 10245162 (Version 2)
Quarter: 2014Q2

REPORT INFORMATION
  Report Type: Spontaneous
  Country: GB (occurrence: GB)
  Receive Date: 20140618
  Receipt Date: 20140626
  Transmission Date: 20141212
  Serious: Yes (Death)
  Sender: FDA-Public Use
  Company Number: GB-B.I. PHARMACEUTICALS,INC./RIDGEFIELD-2014-BI-27360UK

PATIENT
  Age: 83 Year
  Sex: Male

DRUGS (3)
  1. PRADAXA [Suspect]
     Indication: ATRIAL FIBRILLATION
     Dosage: 300 MG
     Route: 048
  2. PRADAXA [Suspect]
     Dosage: 220 MG
     Route: 048
  3. FRUSEMIDE [Concomitant]
     Indication: CARDIAC FAILURE
     Route: 042

REACTIONS (2)
  - Pulmonary embolism [Fatal]
  - Renal impairment [Unknown]
